FAERS Safety Report 10684238 (Version 3)
Quarter: 2015Q2

REPORT INFORMATION
  Report Type: Spontaneous
  Country: JP (occurrence: JP)
  Receive Date: 20141231
  Receipt Date: 20150420
  Transmission Date: 20150821
  Serious: Yes (Death, Other)
  Sender: FDA-Public Use
  Company Number: JP-ROCHE-1515060

PATIENT
  Age: 66 Year
  Sex: Male

DRUGS (10)
  1. ALLEGRA [Suspect]
     Active Substance: FEXOFENADINE HYDROCHLORIDE
     Indication: HYPERSENSITIVITY
     Dosage: DOSAGE IS UNCERTAIN.
     Route: 048
     Dates: start: 20141223, end: 201412
  2. ACTEMRA [Suspect]
     Active Substance: TOCILIZUMAB
     Indication: RHEUMATOID ARTHRITIS
  3. TAMIFLU [Suspect]
     Active Substance: OSELTAMIVIR PHOSPHATE
     Indication: INFLUENZA
     Route: 048
     Dates: start: 20141222, end: 20141223
  4. NEO-MINOPHAGEN C [Suspect]
     Active Substance: AMMONIUM GLYCYRRHIZATE
     Indication: HYPERSENSITIVITY
     Dosage: DOSAGE IS UNCERTAIN.
     Route: 042
     Dates: start: 20141223, end: 201412
  5. ACTEMRA [Suspect]
     Active Substance: TOCILIZUMAB
     Indication: RHEUMATOID ARTHRITIS
     Route: 058
     Dates: start: 201305
  6. NEO-MINOPHAGEN C [Suspect]
     Active Substance: AMMONIUM GLYCYRRHIZATE
     Indication: HYPERSENSITIVITY
  7. ACTEMRA [Suspect]
     Active Substance: TOCILIZUMAB
     Indication: RHEUMATOID ARTHRITIS
     Dosage: DOSAGE IS UNCERTAIN.
     Route: 042
     Dates: start: 20130228, end: 201305
  8. HOMOCLOMIN [Suspect]
     Active Substance: HOMOCHLORCYCLIZINE DIHYDROCHLORIDE
     Indication: HYPERSENSITIVITY
     Dosage: DOSAGE IS UNCERTAIN.
     Route: 048
     Dates: start: 20141223, end: 201412
  9. INFLUENZA HA VACCINE [Concomitant]
     Active Substance: INFLUENZA VIRUS VACCINE
     Dosage: DOSAGE IS UNCERTAIN.
     Route: 058
     Dates: start: 20141220, end: 20141220
  10. INFLUENZA HA VACCINE [Concomitant]
     Active Substance: INFLUENZA VIRUS VACCINE
     Dosage: DOSAGE IS UNCERTAIN.
     Route: 058
     Dates: start: 20141220, end: 20141220

REACTIONS (4)
  - Influenza [Fatal]
  - Sepsis [Unknown]
  - Hypersensitivity [Fatal]
  - Dyspnoea [Fatal]

NARRATIVE: CASE EVENT DATE: 201412
